FAERS Safety Report 21137658 (Version 2)
Quarter: 2022Q3

REPORT INFORMATION
  Report Type: Spontaneous
  Country: US (occurrence: US)
  Receive Date: 20220727
  Receipt Date: 20220802
  Transmission Date: 20221026
  Serious: No
  Sender: FDA-Public Use
  Company Number: US-PFIZER INC-202201006089

PATIENT
  Age: 73 Year
  Sex: Male

DRUGS (1)
  1. PAXLOVID [Suspect]
     Active Substance: NIRMATRELVIR\RITONAVIR
     Indication: COVID-19 treatment
     Dosage: 2 DF, 2X/DAY (TAKE 2 PILLS; 2 TABLETS IN THE MORNING AND 2 TABLETS IN THE EVENING)

REACTIONS (2)
  - Fatigue [Not Recovered/Not Resolved]
  - Circumstance or information capable of leading to medication error [Unknown]
